FAERS Safety Report 9249925 (Version 1)
Quarter: 2013Q2

REPORT INFORMATION
  Report Type: Spontaneous
  Country: US (occurrence: US)
  Receive Date: 20130423
  Receipt Date: 20130423
  Transmission Date: 20140414
  Serious: No
  Sender: FDA-Public Use
  Company Number: US-009507513-1304USA007557

PATIENT
  Age: 61 Year
  Sex: Male

DRUGS (3)
  1. PEGINTRON [Suspect]
     Indication: HEPATITIS C
     Dosage: 150 MICROGRAM, QW
     Route: 058
     Dates: start: 20130301
  2. RIBAVIRIN (WARRICK) [Suspect]
     Route: 048
  3. VICTRELIS [Suspect]
     Route: 048

REACTIONS (4)
  - Diarrhoea [Recovered/Resolved]
  - Pyrexia [Recovered/Resolved]
  - Product quality issue [Unknown]
  - Wrong technique in drug usage process [Unknown]
